FAERS Safety Report 16279498 (Version 1)
Quarter: 2019Q2

REPORT INFORMATION
  Report Type: Spontaneous
  Country: GB (occurrence: GB)
  Receive Date: 20190507
  Receipt Date: 20190507
  Transmission Date: 20190711
  Serious: Yes (Other)
  Sender: FDA-Public Use
  Company Number: GB-DEXPHARM-20190296

PATIENT
  Age: 56 Year
  Sex: Female
  Weight: 70 kg

DRUGS (1)
  1. CORSODYL [Suspect]
     Active Substance: CHLORHEXIDINE GLUCONATE
     Indication: DENTAL IMPLANTATION
     Dosage: 2 OR 3 TIMES PER DAY
     Route: 048
     Dates: start: 20190319, end: 20190327

REACTIONS (2)
  - Ageusia [Not Recovered/Not Resolved]
  - Anosmia [Not Recovered/Not Resolved]

NARRATIVE: CASE EVENT DATE: 20190319
